FAERS Safety Report 18164672 (Version 2)
Quarter: 2020Q3

REPORT INFORMATION
  Report Type: Report from Study
  Country: CN (occurrence: CN)
  Receive Date: 20200819
  Receipt Date: 20200903
  Transmission Date: 20201103
  Serious: Yes (Hospitalization)
  Sender: FDA-Public Use
  Company Number: CN-AMGEN-CHNSP2018178152

PATIENT
  Age: 59 Year
  Sex: Male

DRUGS (4)
  1. CALCITRIOL. [Concomitant]
     Active Substance: CALCITRIOL
     Indication: VITAMIN SUPPLEMENTATION
     Dosage: 2 DF, TID
     Route: 048
     Dates: start: 2014
  2. CALCIUM CARBONATE. [Concomitant]
     Active Substance: CALCIUM CARBONATE
     Indication: MINERAL SUPPLEMENTATION
     Dosage: 4 DF, TID
     Route: 048
     Dates: start: 20181115
  3. CINACALCET HCL ? KHK [Suspect]
     Active Substance: CINACALCET HYDROCHLORIDE
     Indication: HYPERPARATHYROIDISM SECONDARY
     Dosage: 25 MG, QD
     Route: 048
     Dates: start: 201806, end: 201810
  4. CINACALCET HCL ? KHK [Suspect]
     Active Substance: CINACALCET HYDROCHLORIDE
     Dosage: 75 MG, QD
     Route: 048
     Dates: start: 201810, end: 20181105

REACTIONS (3)
  - Therapeutic response decreased [Not Recovered/Not Resolved]
  - Asthenia [Recovering/Resolving]
  - Hyperparathyroidism secondary [Unknown]

NARRATIVE: CASE EVENT DATE: 201809
